FAERS Safety Report 16475129 (Version 1)
Quarter: 2019Q2

REPORT INFORMATION
  Report Type: Spontaneous
  Country: US (occurrence: US)
  Receive Date: 20190625
  Receipt Date: 20190625
  Transmission Date: 20190711
  Serious: No
  Sender: FDA-Public Use
  Company Number: US-BAUSCH-BL-2019-016823

PATIENT
  Sex: Male

DRUGS (1)
  1. EFUDEX [Suspect]
     Active Substance: FLUOROURACIL
     Indication: BASAL CELL CARCINOMA
     Dosage: ON THE FACE
     Route: 061
     Dates: start: 20190422

REACTIONS (4)
  - Insomnia [Not Recovered/Not Resolved]
  - Burning sensation [Not Recovered/Not Resolved]
  - Facial pain [Not Recovered/Not Resolved]
  - Dermatitis contact [Not Recovered/Not Resolved]

NARRATIVE: CASE EVENT DATE: 2019
